FAERS Safety Report 5662593-6 (Version None)
Quarter: 2008Q1

REPORT INFORMATION
  Report Type: 
  Country: None (occurrence: None)
  Receive Date: 20080310
  Receipt Date: 20080310
  Transmission Date: 20080703
  Serious: Yes (Hospitalization)
  Sender: FDA-Public Use
  Company Number: None

PATIENT
  Age: 56 Year
  Sex: Male

DRUGS (1)
  1. GEMCITABINE [Suspect]
     Dosage: 2121MG OTHER IV
     Route: 042
     Dates: start: 20080109, end: 20080116

REACTIONS (1)
  - THROMBOCYTOPENIA [None]
